FAERS Safety Report 17005566 (Version 1)
Quarter: 2019Q4

REPORT INFORMATION
  Report Type: Spontaneous
  Country: US (occurrence: US)
  Receive Date: 20190926
  Receipt Date: 20190926
  Transmission Date: 20200122
  Serious: No
  Sender: FDA-Public Use
  Company Number: None

PATIENT
  Age: 33 Year
  Sex: Male

DRUGS (1)
  1. CAPECITABINE 500MG [Suspect]
     Active Substance: CAPECITABINE
     Indication: CHOLANGIOCARCINOMA
     Dosage: ?          OTHER FREQUENCY:14 DAYS ON/7 OFF;?
     Route: 048
     Dates: start: 20190629

REACTIONS (4)
  - Nausea [None]
  - Fatigue [None]
  - Skin ulcer [None]
  - Weight decreased [None]

NARRATIVE: CASE EVENT DATE: 20190919
